FAERS Safety Report 9646622 (Version 1)
Quarter: 2013Q4

REPORT INFORMATION
  Report Type: Report from Study
  Country: ZA (occurrence: ZA)
  Receive Date: 20131026
  Receipt Date: 20131026
  Transmission Date: 20140711
  Serious: Yes (Death)
  Sender: FDA-Public Use
  Company Number: ZA-ROCHE-1292640

PATIENT
  Age: 38 Year
  Sex: Female

DRUGS (4)
  1. RECORMON [Suspect]
     Indication: NEPHROGENIC ANAEMIA
     Route: 058
     Dates: start: 201306, end: 201309
  2. MIRCERA [Suspect]
     Indication: NEPHROGENIC ANAEMIA
     Route: 058
     Dates: start: 201301
  3. MIRCERA [Suspect]
     Route: 058
     Dates: start: 201304
  4. VENOFER [Concomitant]
     Route: 042

REACTIONS (1)
  - Disease progression [Fatal]
